FAERS Safety Report 7460490-7 (Version None)
Quarter: 2011Q2

REPORT INFORMATION
  Report Type: 
  Country: None (occurrence: None)
  Receive Date: 20110505
  Receipt Date: 20110502
  Transmission Date: 20111010
  Serious: Yes (Other)
  Sender: FDA-Public Use
  Company Number: US-PFIZER INC-2010120177

PATIENT
  Sex: Female
  Weight: 80.8 kg

DRUGS (10)
  1. SEROQUEL [Concomitant]
     Indication: BIPOLAR DISORDER
     Dosage: 100 MG, 2X/DAY
  2. IMODIUM MULTI-SYMPTOM RELIEF [Suspect]
     Indication: IRRITABLE BOWEL SYNDROME
     Dosage: 6 MG, 1X/DAY
     Route: 048
  3. NEURONTIN [Concomitant]
     Indication: NEURALGIA
     Dosage: 300 MG, 2X/DAY
  4. CHANTIX [Suspect]
     Indication: SMOKING CESSATION THERAPY
     Dosage: 0.5 MG, UNK
     Route: 048
     Dates: start: 20100701, end: 20100101
  5. CHANTIX [Suspect]
     Indication: TOBACCO ABUSE
     Dosage: 1 MG, 2X/DAY
     Route: 048
     Dates: start: 20100101, end: 20100915
  6. PROTONIX [Suspect]
     Indication: GASTROOESOPHAGEAL REFLUX DISEASE
     Dosage: 40 MG, 2X/DAY
     Route: 048
  7. IMODIUM MULTI-SYMPTOM RELIEF [Suspect]
     Dosage: 2 MG, UNK
     Route: 048
  8. MULTI-VITAMINS [Concomitant]
     Indication: SUPPLEMENTATION THERAPY
     Dosage: UNK
  9. ACETAMINOPHEN [Concomitant]
     Indication: PAIN
     Dosage: 650 MG, 2X/DAY
  10. OXYCODONE [Concomitant]
     Indication: PAIN
     Dosage: 10 MG, 2X/DAY

REACTIONS (7)
  - GASTROOESOPHAGEAL REFLUX DISEASE [None]
  - IRRITABLE BOWEL SYNDROME [None]
  - DRUG INEFFECTIVE [None]
  - ABDOMINAL PAIN UPPER [None]
  - GASTRIC ULCER [None]
  - VOMITING [None]
  - NAUSEA [None]
